FAERS Safety Report 7765230-X (Version None)
Quarter: 2011Q3

REPORT INFORMATION
  Report Type: 
  Country: None (occurrence: None)
  Receive Date: 20110916
  Receipt Date: 20110907
  Transmission Date: 20111222
  Serious: Yes (Other)
  Sender: FDA-Public Use
  Company Number: 2011SP042421

PATIENT
  Sex: Female

DRUGS (1)
  1. INTRON A [Suspect]
     Indication: HEPATITIS C

REACTIONS (3)
  - DIABETES MELLITUS [None]
  - INFLUENZA [None]
  - HEPATIC CIRRHOSIS [None]
